FAERS Safety Report 7015757-3 (Version None)
Quarter: 2010Q3

REPORT INFORMATION
  Report Type: 
  Country: None (occurrence: None)
  Receive Date: 20100927
  Receipt Date: 20091027
  Transmission Date: 20110219
  Serious: No
  Sender: FDA-Public Use
  Company Number: US-ASTRAZENECA-2009SE22911

PATIENT
  Age: 813 Month
  Sex: Female
  Weight: 63 kg

DRUGS (1)
  1. ARIMIDEX [Suspect]
     Indication: BREAST CANCER
     Route: 048
     Dates: start: 20090801, end: 20090901

REACTIONS (3)
  - DIPLOPIA [None]
  - DIZZINESS [None]
  - DRY EYE [None]
